FAERS Safety Report 5895867-4 (Version None)
Quarter: 2008Q3

REPORT INFORMATION
  Report Type: 
  Country: None (occurrence: None)
  Receive Date: 20080822
  Receipt Date: 20070919
  Transmission Date: 20090109
  Serious: Yes (Hospitalization)
  Sender: FDA-Public Use
  Company Number: T200701134

PATIENT
  Age: 81 Year
  Sex: Male

DRUGS (4)
  1. OXYCODONE HCL [Suspect]
     Indication: PAIN
     Dosage: ORAL
     Route: 048
     Dates: start: 20070827, end: 20070903
  2. HYDROCODONE BITARTRATE AND ACETAMINOPHEN [Suspect]
     Indication: PAIN
     Dosage: ONE TABLET EVERY 6 HOURS, ORAL ; 1/2 TAB EVERY 6 HOURS, ORAL
     Route: 048
     Dates: start: 20070904, end: 20070909
  3. HYDROCODONE BITARTRATE AND ACETAMINOPHEN [Suspect]
     Indication: PAIN
     Dosage: ONE TABLET EVERY 6 HOURS, ORAL ; 1/2 TAB EVERY 6 HOURS, ORAL
     Route: 048
     Dates: start: 20070910
  4. VERAPAMIL [Concomitant]

REACTIONS (3)
  - BALANCE DISORDER [None]
  - DYSPNOEA [None]
  - FEELING ABNORMAL [None]
